FAERS Safety Report 4515307-7 (Version None)
Quarter: 2004Q4

REPORT INFORMATION
  Report Type: 
  Country: None (occurrence: None)
  Receive Date: 20041201
  Receipt Date: 20041124
  Transmission Date: 20050328
  Serious: Yes (Hospitalization)
  Sender: FDA-Public Use
  Company Number: US-BRISTOL-MYERS SQUIBB COMPANY-12774824

PATIENT
  Age: 59 Year
  Sex: Female
  Weight: 81 kg

DRUGS (4)
  1. CETUXIMAB [Suspect]
     Indication: COLORECTAL CANCER
     Dosage: 236 MG/TOTAL ADMINISTERED THIS COURSE
     Route: 042
     Dates: start: 20041020, end: 20041020
  2. FLUOROURACIL [Suspect]
     Indication: COLORECTAL CANCER
     Dosage: 5264 MG/TOTAL ADMINISTERED THIS COURSE
     Route: 042
     Dates: start: 20040929, end: 20040929
  3. LEUCOVORIN [Suspect]
     Indication: COLORECTAL CANCER
     Dosage: 752 MG/TOTAL ADMINISTERED THIS COURSE
     Route: 042
     Dates: start: 20040929, end: 20040929
  4. IRINOTECAN HCL [Suspect]
     Indication: COLORECTAL CANCER
     Dosage: 338 MG/TOTAL ADMINISTERED THIS COURSE
     Route: 042
     Dates: start: 20040929, end: 20040929

REACTIONS (5)
  - JUGULAR VEIN THROMBOSIS [None]
  - PLEURAL EFFUSION [None]
  - RESPIRATORY DISORDER [None]
  - THROMBOSIS [None]
  - VENA CAVA THROMBOSIS [None]
